FAERS Safety Report 4680006-8 (Version None)
Quarter: 2005Q2

REPORT INFORMATION
  Report Type: 
  Country: None (occurrence: None)
  Receive Date: 20050602
  Receipt Date: 20050527
  Transmission Date: 20051028
  Serious: Yes (Other)
  Sender: FDA-Public Use
  Company Number: US-GLAXOSMITHKLINE-A0560424A

PATIENT

DRUGS (3)
  1. ZIAGEN [Suspect]
     Indication: ILL-DEFINED DISORDER
     Route: 048
  2. VIREAD [Concomitant]
  3. REYATAZ [Concomitant]

REACTIONS (1)
  - HEPATITIS FULMINANT [None]
